FAERS Safety Report 25660827 (Version 1)
Quarter: 2025Q3

REPORT INFORMATION
  Report Type: Spontaneous
  Country: RU (occurrence: RU)
  Receive Date: 20250808
  Receipt Date: 20250808
  Transmission Date: 20251020
  Serious: Yes (Other)
  Sender: ROCHE
  Company Number: RU-ROCHE-10000356886

PATIENT
  Sex: Female

DRUGS (11)
  1. ATEZOLIZUMAB [Suspect]
     Active Substance: ATEZOLIZUMAB
     Indication: Small cell lung cancer
     Route: 042
     Dates: start: 20210426
  2. ATEZOLIZUMAB [Suspect]
     Active Substance: ATEZOLIZUMAB
     Route: 042
     Dates: start: 20210519
  3. ATEZOLIZUMAB [Suspect]
     Active Substance: ATEZOLIZUMAB
     Dosage: 1200 MG ON DAY 1
     Route: 042
     Dates: start: 202106
  4. ETOPOSIDE [Suspect]
     Active Substance: ETOPOSIDE
     Indication: Small cell lung cancer
     Route: 050
     Dates: start: 20210311
  5. ETOPOSIDE [Suspect]
     Active Substance: ETOPOSIDE
     Route: 050
     Dates: start: 20210402
  6. ETOPOSIDE [Suspect]
     Active Substance: ETOPOSIDE
     Route: 050
     Dates: start: 20210426
  7. ETOPOSIDE [Suspect]
     Active Substance: ETOPOSIDE
     Route: 042
     Dates: start: 20210519
  8. CARBOPLATIN [Suspect]
     Active Substance: CARBOPLATIN
     Indication: Small cell lung cancer
     Route: 050
     Dates: start: 20210311
  9. CARBOPLATIN [Suspect]
     Active Substance: CARBOPLATIN
     Route: 050
     Dates: start: 20210402
  10. CARBOPLATIN [Suspect]
     Active Substance: CARBOPLATIN
     Route: 050
     Dates: start: 20210426
  11. CARBOPLATIN [Suspect]
     Active Substance: CARBOPLATIN
     Route: 042
     Dates: start: 20210519

REACTIONS (3)
  - Lymphadenopathy mediastinal [Unknown]
  - Pericardial effusion [Unknown]
  - Lung cancer metastatic [Unknown]
